FAERS Safety Report 9449297 (Version 3)
Quarter: 2013Q3

REPORT INFORMATION
  Report Type: Spontaneous
  Country: JP (occurrence: JP)
  Receive Date: 20130808
  Receipt Date: 20130830
  Transmission Date: 20140515
  Serious: Yes (Other)
  Sender: FDA-Public Use
  Company Number: JP-PFIZER INC-2013230894

PATIENT
  Age: 63 Year
  Sex: Male

DRUGS (6)
  1. MYCOBUTIN [Suspect]
     Indication: MYCOBACTERIUM AVIUM COMPLEX INFECTION
     Dosage: 150 MG, 1X/DAY
     Route: 048
     Dates: start: 20130611, end: 20130709
  2. MYCOBUTIN [Suspect]
     Indication: ATYPICAL MYCOBACTERIAL PNEUMONIA
  3. CLARITHROMYCIN [Suspect]
     Indication: MYCOBACTERIUM AVIUM COMPLEX INFECTION
     Dosage: 400 MG, 1X/DAY
     Route: 048
     Dates: start: 20130326, end: 20130709
  4. CLARITHROMYCIN [Suspect]
     Indication: ATYPICAL MYCOBACTERIAL PNEUMONIA
  5. EBUTOL [Suspect]
     Indication: MYCOBACTERIUM AVIUM COMPLEX INFECTION
     Dosage: 500 MG, 1X/DAY
     Route: 048
     Dates: start: 20130402, end: 20130709
  6. EBUTOL [Suspect]
     Indication: ATYPICAL MYCOBACTERIAL PNEUMONIA

REACTIONS (2)
  - Renal impairment [Not Recovered/Not Resolved]
  - Proteinuria [Not Recovered/Not Resolved]
